FAERS Safety Report 9134838 (Version 1)
Quarter: 2013Q1

REPORT INFORMATION
  Report Type: Spontaneous
  Country: US (occurrence: US)
  Receive Date: 20130304
  Receipt Date: 20130304
  Transmission Date: 20140127
  Serious: No
  Sender: FDA-Public Use
  Company Number: US-PFIZER INC-2013075028

PATIENT
  Age: 28 Year
  Sex: Male
  Weight: 113 kg

DRUGS (5)
  1. CHANTIX [Suspect]
     Dosage: 0.5 MG, 2X/DAY
     Dates: start: 201302, end: 201302
  2. CHANTIX [Suspect]
     Dosage: UNK
     Dates: start: 201302, end: 20130226
  3. SEPTRA [Suspect]
     Indication: CYST
     Dosage: 800 MG, 2X/DAY
     Dates: start: 20130222
  4. OMEPRAZOLE [Concomitant]
     Dosage: UNK
  5. CHANTIX [Suspect]
     Indication: SMOKING CESSATION THERAPY
     Dosage: 0.5MG DAILY
     Dates: start: 20130222, end: 20130224

REACTIONS (6)
  - Migraine [Recovering/Resolving]
  - Asthenia [Recovering/Resolving]
  - Fatigue [Recovering/Resolving]
  - Middle insomnia [Recovering/Resolving]
  - Pyrexia [Recovering/Resolving]
  - Dysstasia [Recovering/Resolving]
